FAERS Safety Report 22617181 (Version 1)
Quarter: 2023Q2

REPORT INFORMATION
  Report Type: Spontaneous
  Country: ES (occurrence: ES)
  Receive Date: 20230620
  Receipt Date: 20230620
  Transmission Date: 20230722
  Serious: No
  Sender: FDA-Public Use
  Company Number: ES-ALKEM LABORATORIES LIMITED-ES-ALKEM-2023-03324

PATIENT
  Age: 70 Year
  Sex: Female

DRUGS (4)
  1. LEVETIRACETAM [Suspect]
     Active Substance: LEVETIRACETAM
     Indication: Seizure
     Dosage: UNK
     Route: 065
  2. LEVETIRACETAM [Suspect]
     Active Substance: LEVETIRACETAM
     Dosage: 3.5 G/DAY (ENDOVENOUS)
     Route: 042
  3. LEVETIRACETAM [Suspect]
     Active Substance: LEVETIRACETAM
     Dosage: 2 GRAM (DAILY DOSE REDUCED)
     Route: 065
  4. LEVETIRACETAM [Suspect]
     Active Substance: LEVETIRACETAM
     Dosage: LEVETIRACETAM 500 MICRO G/ML 1G EVERY 12 HOURS, DILUTED IN 100 ML SALINE SOLUTION WAS ADMINISTERED O
     Route: 058

REACTIONS (5)
  - Treatment noncompliance [Unknown]
  - Affect lability [Recovering/Resolving]
  - Irritability [Recovering/Resolving]
  - Toxicity to various agents [Recovering/Resolving]
  - Drug level increased [Recovered/Resolved]
